FAERS Safety Report 6692800-2 (Version None)
Quarter: 2010Q2

REPORT INFORMATION
  Report Type: 
  Country: None (occurrence: None)
  Receive Date: 20100422
  Receipt Date: 20100406
  Transmission Date: 20101027
  Serious: Yes (Death, Other)
  Sender: FDA-Public Use
  Company Number: -BAXTER-2010BH006606

PATIENT
  Age: 44 Year
  Sex: Female

DRUGS (1)
  1. DIANEAL [Suspect]
     Indication: PERITONEAL DIALYSIS
     Route: 033
     Dates: end: 20100309

REACTIONS (5)
  - BACTERIAL INFECTION [None]
  - CARDIAC TAMPONADE [None]
  - DEVICE RELATED INFECTION [None]
  - PERICARDITIS [None]
  - SEPSIS [None]
